FAERS Safety Report 22886392 (Version 3)
Quarter: 2024Q2

REPORT INFORMATION
  Report Type: Report from Study
  Country: CH (occurrence: CH)
  Receive Date: 20230831
  Receipt Date: 20240621
  Transmission Date: 20240715
  Serious: Yes (Other)
  Sender: FDA-Public Use
  Company Number: CH-SANDOZ-NVSC2022CH255463

PATIENT
  Age: 74 Year
  Sex: Male
  Weight: 83 kg

DRUGS (13)
  1. CARBOPLATIN [Suspect]
     Active Substance: CARBOPLATIN
     Indication: B-cell lymphoma
     Dosage: 630 MG, ONCE
     Route: 042
     Dates: start: 20200130
  2. CYCLOPHOSPHAMIDE [Suspect]
     Active Substance: CYCLOPHOSPHAMIDE
     Indication: Lymphodepletion
     Dosage: 1500 MG, EVERYDAY
     Route: 065
     Dates: start: 20200309, end: 20200311
  3. ETOPOSIDE [Suspect]
     Active Substance: ETOPOSIDE
     Indication: B-cell lymphoma
     Dosage: 630 MG, EVERYDAY,CONCENTRATE FOR SOLUTION FOR INJECTION
     Route: 042
     Dates: start: 20200129
  4. GRANULOCYTE COLONY-STIMULATING FACTOR NOS [Suspect]
     Active Substance: GRANULOCYTE COLONY-STIMULATING FACTOR NOS
     Indication: Product used for unknown indication
     Route: 065
  5. IFOSFAMIDE [Suspect]
     Active Substance: IFOSFAMIDE
     Indication: B-cell lymphoma
     Dosage: 10450 MG, CONTINUOUS INFUSION 24H
     Route: 065
     Dates: start: 20200130
  6. MESNA [Suspect]
     Active Substance: MESNA
     Indication: B-cell lymphoma
     Dosage: 8360 MG, CONTINUOUS INFUSION 24H
     Route: 065
     Dates: start: 20200130
  7. RITUXIMAB [Suspect]
     Active Substance: RITUXIMAB
     Indication: B-cell lymphoma
     Dosage: 780 MG, ONCE
     Route: 042
     Dates: start: 20200129
  8. TISAGENLECLEUCEL [Suspect]
     Active Substance: TISAGENLECLEUCEL
     Indication: B-cell lymphoma
     Dosage: 2.0_10E8 CELLS
     Route: 042
     Dates: start: 20200317
  9. BACTRIM [Concomitant]
     Active Substance: SULFAMETHOXAZOLE\TRIMETHOPRIM
     Indication: Antibiotic prophylaxis
     Dosage: UNK
     Route: 065
     Dates: start: 20200204
  10. CRESEMBA [Concomitant]
     Active Substance: ISAVUCONAZONIUM SULFATE
     Indication: Antifungal prophylaxis
     Dosage: UNK
     Route: 065
     Dates: start: 20200327
  11. CRESEMBA [Concomitant]
     Active Substance: ISAVUCONAZONIUM SULFATE
     Indication: Pneumonia fungal
  12. DAFALGAN [Concomitant]
     Active Substance: ACETAMINOPHEN
     Indication: Neuralgia
     Dosage: UNK
     Route: 065
     Dates: start: 20200327
  13. FLUDARABINE [Concomitant]
     Active Substance: FLUDARABINE PHOSPHATE
     Indication: Chemotherapy
     Dosage: 150 MG, EVERYDAY
     Route: 065
     Dates: start: 20200309, end: 20200311

REACTIONS (2)
  - Myelodysplastic syndrome [Not Recovered/Not Resolved]
  - Second primary malignancy [Not Recovered/Not Resolved]

NARRATIVE: CASE EVENT DATE: 20220121
